FAERS Safety Report 17771821 (Version 2)
Quarter: 2020Q2

REPORT INFORMATION
  Report Type: Spontaneous
  Country: US (occurrence: US)
  Receive Date: 20200512
  Receipt Date: 20200626
  Transmission Date: 20200714
  Serious: Yes (Other)
  Sender: FDA-Public Use
  Company Number: US-ELI_LILLY_AND_COMPANY-US202005000462

PATIENT
  Age: 63 Year
  Sex: Female

DRUGS (6)
  1. ALBUTEROL [SALBUTAMOL] [Suspect]
     Active Substance: ALBUTEROL
     Indication: COUGH
     Dosage: UNK UNK, UNKNOWN
     Route: 065
  2. TRULICITY [Suspect]
     Active Substance: DULAGLUTIDE
     Dosage: 1.5 MG, WEEKLY (1/W)
     Route: 058
  3. TRULICITY [Suspect]
     Active Substance: DULAGLUTIDE
     Indication: TYPE 2 DIABETES MELLITUS
     Dosage: 1.5 MG, WEEKLY (1/W)
     Route: 058
  4. TRULICITY [Suspect]
     Active Substance: DULAGLUTIDE
     Dosage: 1.5 MG, WEEKLY (1/W)
     Route: 058
  5. TRULICITY [Suspect]
     Active Substance: DULAGLUTIDE
     Indication: TYPE 2 DIABETES MELLITUS
     Dosage: 1.5 MG, WEEKLY (1/W)
     Route: 058
  6. METFORMIN [Concomitant]
     Active Substance: METFORMIN HYDROCHLORIDE
     Indication: TYPE 2 DIABETES MELLITUS
     Dosage: 2 DOSAGE FORM, BID

REACTIONS (22)
  - Suspected COVID-19 [Recovering/Resolving]
  - Wound secretion [Recovered/Resolved]
  - Hypoacusis [Recovered/Resolved]
  - Chest pain [Recovered/Resolved]
  - Pyrexia [Unknown]
  - Product storage error [Recovered/Resolved]
  - Parosmia [Recovered/Resolved]
  - Oropharyngeal pain [Recovered/Resolved]
  - Asthenia [Unknown]
  - Blood glucose increased [Unknown]
  - Neoplasm skin [Recovered/Resolved]
  - Bronchitis [Recovering/Resolving]
  - Tinnitus [Recovered/Resolved]
  - Dyspnoea [Recovered/Resolved]
  - Nasal dryness [Recovered/Resolved]
  - Cough [Recovering/Resolving]
  - Headache [Recovered/Resolved]
  - Diarrhoea [Recovered/Resolved]
  - Malaise [Recovering/Resolving]
  - Therapeutic product effect decreased [Unknown]
  - Ear infection [Recovered/Resolved]
  - Seasonal allergy [Recovering/Resolving]

NARRATIVE: CASE EVENT DATE: 202001
